FAERS Safety Report 9468212 (Version 1)
Quarter: 2013Q3

REPORT INFORMATION
  Report Type: Spontaneous
  Country: FR (occurrence: FR)
  Receive Date: 20130821
  Receipt Date: 20130821
  Transmission Date: 20140515
  Serious: Yes (Other)
  Sender: FDA-Public Use
  Company Number: FR-MYLANLABS-2013S1017628

PATIENT
  Age: 25 Year
  Sex: Male
  Weight: 72 kg

DRUGS (7)
  1. METHOTREXATE [Suspect]
     Indication: PRECURSOR T-LYMPHOBLASTIC LYMPHOMA/LEUKAEMIA
     Dosage: DOSE UNIT:5600 MILLIGRAMS PER DAY*
     Route: 042
     Dates: start: 20130722, end: 20130723
  2. VINCRISTINE [Concomitant]
     Dates: start: 20130722, end: 20130726
  3. MERCAPTOPURINE [Concomitant]
     Dates: start: 20130722, end: 20130726
  4. ASPARAGINASE [Concomitant]
     Dates: start: 20130722, end: 20130726
  5. ZOPHREN [Concomitant]
  6. ZELITREX [Concomitant]
  7. DIFFU K [Concomitant]

REACTIONS (1)
  - Chemotherapeutic drug level increased [Recovered/Resolved]
